FAERS Safety Report 5750574-3 (Version None)
Quarter: 2008Q2

REPORT INFORMATION
  Report Type: 
  Country: None (occurrence: None)
  Receive Date: 20080523
  Receipt Date: 20080523
  Transmission Date: 20081010
  Serious: No
  Sender: FDA-Public Use
  Company Number: None

PATIENT
  Age: 58 Year
  Sex: Male
  Weight: 81.6 kg

DRUGS (1)
  1. VARENICLINE [Suspect]
     Indication: NICOTINE DEPENDENCE
     Dosage: 0.5 MG EVERY DAY PO
     Route: 048
     Dates: start: 20070710, end: 20070727

REACTIONS (6)
  - ABNORMAL DREAMS [None]
  - ANOREXIA [None]
  - NAUSEA [None]
  - NIGHTMARE [None]
  - VOMITING [None]
  - WEIGHT DECREASED [None]
